FAERS Safety Report 6128238-6 (Version None)
Quarter: 2009Q1

REPORT INFORMATION
  Report Type: 
  Country: None (occurrence: None)
  Receive Date: 20090319
  Receipt Date: 20090305
  Transmission Date: 20090719
  Serious: Yes (Life-Threatening)
  Sender: FDA-Public Use
  Company Number: 02100-JPN-05-0595

PATIENT
  Sex: Female

DRUGS (1)
  1. PLETAL [Suspect]
     Dosage: 100 MG, BID ORAL
     Route: 048
     Dates: end: 20051126

REACTIONS (6)
  - BLOOD PRESSURE DECREASED [None]
  - CEREBRAL INFARCTION [None]
  - SEPSIS [None]
  - SOMNOLENCE [None]
  - URINARY TRACT INFECTION [None]
  - VOMITING [None]
